FAERS Safety Report 4528638-1 (Version None)
Quarter: 2004Q4

REPORT INFORMATION
  Report Type: 
  Country: None (occurrence: None)
  Receive Date: 20041216
  Receipt Date: 20041122
  Transmission Date: 20050328
  Serious: Yes (Hospitalization)
  Sender: FDA-Public Use
  Company Number: US-GLAXOSMITHKLINE-A0534960A

PATIENT
  Age: 36 Year
  Sex: Male
  Weight: 97.3 kg

DRUGS (3)
  1. BC POWDER [Suspect]
     Indication: BACK PAIN
     Route: 048
     Dates: start: 20041120
  2. TOPROL-XL [Concomitant]
     Route: 048
  3. CLARINEX [Concomitant]
     Route: 048

REACTIONS (17)
  - BLISTER [None]
  - CANDIDIASIS [None]
  - CAUSTIC INJURY [None]
  - EATING DISORDER [None]
  - GLOSSODYNIA [None]
  - HYPERSENSITIVITY [None]
  - INFECTION [None]
  - INSOMNIA [None]
  - LYMPHADENOPATHY [None]
  - MARKEDLY REDUCED DIETARY INTAKE [None]
  - ORAL MUCOSAL BLISTERING [None]
  - ORAL PAIN [None]
  - PHARYNGOLARYNGEAL PAIN [None]
  - SELF-MEDICATION [None]
  - SPEECH DISORDER [None]
  - SWOLLEN TONGUE [None]
  - TONGUE DISORDER [None]
